FAERS Safety Report 6976171-X (Version None)
Quarter: 2010Q3

REPORT INFORMATION
  Report Type: 
  Country: None (occurrence: None)
  Receive Date: 20100910
  Receipt Date: 20090514
  Transmission Date: 20110219
  Serious: No
  Sender: FDA-Public Use
  Company Number: US-WYE-H08950609

PATIENT
  Sex: Female
  Weight: 86.26 kg

DRUGS (1)
  1. PRISTIQ [Suspect]
     Dosage: UNKNOWN
     Route: 048
     Dates: start: 20090401, end: 20090402

REACTIONS (3)
  - FATIGUE [None]
  - LETHARGY [None]
  - NAUSEA [None]
